FAERS Safety Report 11292273 (Version 19)
Quarter: 2018Q2

REPORT INFORMATION
  Report Type: Spontaneous
  Country: US (occurrence: US)
  Receive Date: 20150722
  Receipt Date: 20180615
  Transmission Date: 20180711
  Serious: Yes (Hospitalization, Other)
  Sender: FDA-Public Use
  Company Number: US-ACTELION-A-NJ2015-121030

PATIENT
  Age: 64 Year
  Sex: Female
  Weight: 50.79 kg

DRUGS (7)
  1. XANAX [Concomitant]
     Active Substance: ALPRAZOLAM
  2. ELIQUIS [Concomitant]
     Active Substance: APIXABAN
  3. TRACLEER [Suspect]
     Active Substance: BOSENTAN
     Dosage: 125 MG, BID
     Route: 048
     Dates: start: 20130729
  4. HYTRIN [Concomitant]
     Active Substance: TERAZOSIN HYDROCHLORIDE
  5. DILTIAZEM. [Concomitant]
     Active Substance: DILTIAZEM
  6. TRACLEER [Suspect]
     Active Substance: BOSENTAN
     Indication: PULMONARY ARTERIAL HYPERTENSION
     Dosage: 125 MG, BID
     Route: 048
     Dates: start: 2010
  7. VALIUM [Concomitant]
     Active Substance: DIAZEPAM

REACTIONS (29)
  - Osteomyelitis [Unknown]
  - Swelling [Unknown]
  - Fatigue [Unknown]
  - Colostomy [Unknown]
  - Urinary tract infection [Unknown]
  - Dyspnoea [Unknown]
  - Asthma [Unknown]
  - Bedridden [Unknown]
  - Spinal operation [Unknown]
  - Finger amputation [Recovered/Resolved]
  - Feeling abnormal [Unknown]
  - Dizziness [Unknown]
  - Gastrointestinal disorder [Unknown]
  - Muscle spasms [Unknown]
  - Choking [Unknown]
  - Fall [Unknown]
  - Adhesion [Unknown]
  - Abdominal operation [Unknown]
  - Raynaud^s phenomenon [Recovered/Resolved]
  - Seasonal allergy [Unknown]
  - Malaise [Unknown]
  - Spinal compression fracture [Unknown]
  - Panic attack [Unknown]
  - Pain [Unknown]
  - Wound infection staphylococcal [Not Recovered/Not Resolved]
  - Infection [Unknown]
  - Gangrene [Recovered/Resolved]
  - Lower limb fracture [Unknown]
  - Cough [Unknown]

NARRATIVE: CASE EVENT DATE: 20170401
